FAERS Safety Report 7567920-0 (Version None)
Quarter: 2011Q2

REPORT INFORMATION
  Report Type: 
  Country: None (occurrence: None)
  Receive Date: 20110616
  Receipt Date: 20110608
  Transmission Date: 20111010
  Serious: Yes (Death, Hospitalization)
  Sender: FDA-Public Use
  Company Number: FUR-11-08

PATIENT
  Age: 58 Year
  Sex: Female

DRUGS (5)
  1. GLICLAZIDE [Concomitant]
  2. CHLORPROMAZINE [Concomitant]
  3. TRAMADOL HCL [Concomitant]
  4. FUROSEMIDE [Suspect]
  5. QUETIAPINE [Concomitant]

REACTIONS (2)
  - TOXICITY TO VARIOUS AGENTS [None]
  - SEROTONIN SYNDROME [None]
